FAERS Safety Report 8162189-0 (Version None)
Quarter: 2012Q1

REPORT INFORMATION
  Report Type: 
  Country: None (occurrence: None)
  Receive Date: 20120224
  Receipt Date: 20111214
  Transmission Date: 20120608
  Serious: No
  Sender: FDA-Public Use
  Company Number: US-BRISTOL-MYERS SQUIBB COMPANY-16293821

PATIENT
  Age: 70 Year
  Sex: Female
  Weight: 107 kg

DRUGS (1)
  1. GLUCOPHAGE [Suspect]
     Dosage: 2008 ON THE CAPS ONE FIRST,2009 SWITD TO THE ROUND TAB,CUTTING TAB IN HALF FOR THE LAST WEEK OR SO
     Dates: start: 20080101

REACTIONS (1)
  - ORAL DISCOMFORT [None]
